FAERS Safety Report 12598970 (Version 6)
Quarter: 2016Q4

REPORT INFORMATION
  Report Type: Report from Study
  Country: DK (occurrence: DK)
  Receive Date: 20160727
  Receipt Date: 20161121
  Transmission Date: 20170207
  Serious: Yes (Death, Hospitalization)
  Sender: FDA-Public Use
  Company Number: DK-BAYER-2016-141459

PATIENT
  Age: 74 Year
  Sex: Male
  Weight: 104.6 kg

DRUGS (9)
  1. SODIUM CHLORIDE. [Concomitant]
     Active Substance: SODIUM CHLORIDE
     Dosage: 3000 ML
     Dates: start: 20160719, end: 20160720
  2. MOVICOL [Concomitant]
     Active Substance: POLYETHYLENE GLYCOL 3350\POTASSIUM CHLORIDE\SODIUM BICARBONATE\SODIUM CHLORIDE
     Indication: CONSTIPATION PROPHYLAXIS
     Dosage: UNK
     Dates: start: 20160719, end: 20160720
  3. TIAMATE [Concomitant]
     Active Substance: DILTIAZEM MALATE
     Dosage: UNK
     Dates: start: 20160719, end: 20160720
  4. STIVARGA [Suspect]
     Active Substance: REGORAFENIB
     Indication: COLORECTAL CANCER METASTATIC
     Dosage: 160 MG, QD
     Dates: start: 20160425, end: 20160720
  5. METOPROLOL. [Concomitant]
     Active Substance: METOPROLOL
     Dosage: 50 MG, UNK
     Dates: start: 20160414
  6. ATRAPID [Concomitant]
     Indication: BLOOD GLUCOSE DECREASED
     Dosage: DAILY DOSE 20 IU
     Dates: start: 20160719, end: 20160720
  7. GLUCOSE [Concomitant]
     Active Substance: DEXTROSE
     Dosage: DAILY DOSE 1000 ML
     Dates: start: 20160719, end: 20160720
  8. PIPERACILLIN SODIUM W/TAZOBACTAM [Concomitant]
     Active Substance: PIPERACILLIN SODIUM\TAZOBACTAM SODIUM
     Indication: INFECTION
     Dosage: DAILY DOSE 12 G
     Dates: start: 20160719, end: 20160720
  9. MORPHINE [Concomitant]
     Active Substance: MORPHINE
     Dosage: DAILY DOSE 30 MG
     Dates: start: 20160719, end: 20160720

REACTIONS (2)
  - Dehydration [Recovered/Resolved]
  - Acute kidney injury [Fatal]

NARRATIVE: CASE EVENT DATE: 20160717
